FAERS Safety Report 14626156 (Version 2)
Quarter: 2018Q3

REPORT INFORMATION
  Report Type: Spontaneous
  Country: AR (occurrence: AR)
  Receive Date: 20180312
  Receipt Date: 20180920
  Transmission Date: 20181010
  Serious: Yes (Hospitalization)
  Sender: FDA-Public Use
  Company Number: AR-PFIZER INC-2018099417

PATIENT
  Age: 78 Year
  Sex: Female

DRUGS (4)
  1. T4 [Concomitant]
     Active Substance: LEVOTHYROXINE
     Dosage: UNK
     Dates: start: 2016
  2. ENALAPRIL [Concomitant]
     Active Substance: ENALAPRIL
     Dosage: UNK
     Dates: start: 2008
  3. OMEPRAZOL [Concomitant]
     Active Substance: OMEPRAZOLE
     Dosage: UNK
     Dates: start: 2008
  4. XELJANZ [Suspect]
     Active Substance: TOFACITINIB CITRATE
     Indication: RHEUMATOID ARTHRITIS
     Dosage: 5 MG, 2X/DAY
     Dates: start: 20150102

REACTIONS (1)
  - Gastrointestinal disorder [Not Recovered/Not Resolved]

NARRATIVE: CASE EVENT DATE: 201802
